FAERS Safety Report 18106780 (Version 2)
Quarter: 2023Q4

REPORT INFORMATION
  Report Type: Report from Study
  Country: JP (occurrence: JP)
  Receive Date: 20200803
  Receipt Date: 20231128
  Transmission Date: 20240110
  Serious: Yes (Other)
  Sender: FDA-Public Use
  Company Number: JP-TAKEDA-2020TJP015499

PATIENT
  Age: 75 Year
  Sex: Male
  Weight: 70.8 kg

DRUGS (16)
  1. LEUPROLIDE ACETATE [Suspect]
     Active Substance: LEUPROLIDE ACETATE
     Indication: Bulbospinal muscular atrophy congenital
     Dosage: 11.25 MILLIGRAM, Q3MONTHS
     Route: 058
     Dates: start: 20190625
  2. INSULIN LISPRO [Concomitant]
     Active Substance: INSULIN LISPRO
     Indication: Diabetes mellitus
     Dosage: 8 INTERNATIONAL UNIT
     Route: 065
     Dates: end: 20190911
  3. PLAVIX [Concomitant]
     Active Substance: CLOPIDOGREL BISULFATE
     Indication: Product used for unknown indication
     Dosage: 75 MILLIGRAM
     Route: 065
  4. METHYLCOBALAMIN [Concomitant]
     Active Substance: METHYLCOBALAMIN
     Indication: Bulbospinal muscular atrophy congenital
     Dosage: 1000 MICROGRAM
     Route: 065
  5. SENNA LEAF [Concomitant]
     Active Substance: SENNA LEAF
     Indication: Constipation
     Dosage: 240 MILLIGRAM
     Route: 065
  6. AMITIZA [Concomitant]
     Active Substance: LUBIPROSTONE
     Indication: Constipation
     Dosage: 48 MICROGRAM
     Route: 065
  7. DUTASTERIDE [Concomitant]
     Active Substance: DUTASTERIDE
     Indication: Product used for unknown indication
     Dosage: 0.5 MILLIGRAM
     Route: 065
  8. URAPIDIL [Concomitant]
     Active Substance: URAPIDIL
     Indication: Product used for unknown indication
     Dosage: 60 MILLIGRAM
     Route: 065
  9. TELMISARTAN [Concomitant]
     Active Substance: TELMISARTAN
     Indication: Product used for unknown indication
     Dosage: 80 MILLIGRAM
     Route: 065
  10. ADALAT [Concomitant]
     Active Substance: NIFEDIPINE
     Indication: Product used for unknown indication
     Dosage: 40 MILLIGRAM
     Route: 065
  11. VILDAGLIPTIN [Concomitant]
     Active Substance: VILDAGLIPTIN
     Indication: Product used for unknown indication
     Dosage: 100 MILLIGRAM
     Route: 065
  12. METGLUCO [Concomitant]
     Active Substance: METFORMIN HYDROCHLORIDE
     Indication: Product used for unknown indication
     Dosage: 500 MILLIGRAM
     Route: 065
     Dates: start: 20191205
  13. HUMALOG MIX50/50 [Concomitant]
     Active Substance: INSULIN LISPRO
     Indication: Product used for unknown indication
     Dosage: 12 INTERNATIONAL UNIT
     Route: 065
  14. INSULIN NOS [Concomitant]
     Active Substance: INSULIN NOS
     Indication: Product used for unknown indication
     Dosage: UNK
     Route: 065
  15. INSULIN NOS [Concomitant]
     Active Substance: INSULIN NOS
     Indication: Product used for unknown indication
     Dosage: UNK
     Route: 065
  16. INSULIN NOS [Concomitant]
     Active Substance: INSULIN NOS
     Indication: Product used for unknown indication
     Dosage: UNK
     Route: 065

REACTIONS (1)
  - Diabetes mellitus [Recovering/Resolving]

NARRATIVE: CASE EVENT DATE: 20190912
